FAERS Safety Report 6242266-1 (Version None)
Quarter: 2009Q2

REPORT INFORMATION
  Report Type: 
  Country: None (occurrence: None)
  Receive Date: 20090622
  Receipt Date: 20090622
  Transmission Date: 20091009
  Serious: Yes (Hospitalization)
  Sender: FDA-Public Use
  Company Number: None

PATIENT
  Age: 42 Year
  Sex: Female

DRUGS (1)
  1. ACETAMINOPHEN AND HYDROCODONE BITARTRATE [Suspect]
     Indication: PAIN
     Dosage: 2 TAB PRN PO
     Route: 048
     Dates: start: 20090121, end: 20090122

REACTIONS (3)
  - INADEQUATE ANALGESIA [None]
  - PRURITUS [None]
  - URTICARIA [None]
